FAERS Safety Report 18054518 (Version 5)
Quarter: 2021Q4

REPORT INFORMATION
  Report Type: Spontaneous
  Country: CA (occurrence: CA)
  Receive Date: 20200722
  Receipt Date: 20211111
  Transmission Date: 20220304
  Serious: Yes (Hospitalization, Other)
  Sender: FDA-Public Use
  Company Number: CA-MLMSERVICE-20200713-2373182-1

PATIENT
  Age: 6 Month
  Sex: Female

DRUGS (12)
  1. RIFAMPIN [Suspect]
     Active Substance: RIFAMPIN
     Indication: Evidence based treatment
     Dosage: UNK
  2. RIFAMPIN [Suspect]
     Active Substance: RIFAMPIN
     Indication: Meningitis
  3. RIFAMPIN [Suspect]
     Active Substance: RIFAMPIN
     Indication: Pleocytosis
  4. AMPICILLIN [Suspect]
     Active Substance: AMPICILLIN
     Indication: Meningitis haemophilus
     Dosage: UNK
  5. CEFOTAXIME SODIUM [Suspect]
     Active Substance: CEFOTAXIME SODIUM
     Indication: Evidence based treatment
     Dosage: INJECTION
  6. CEFOTAXIME SODIUM [Suspect]
     Active Substance: CEFOTAXIME SODIUM
     Indication: Meningitis
  7. CEFOTAXIME SODIUM [Suspect]
     Active Substance: CEFOTAXIME SODIUM
     Indication: Pleocytosis
  8. VANCOMYCIN [Suspect]
     Active Substance: VANCOMYCIN
     Indication: Evidence based treatment
     Dosage: UNK
  9. VANCOMYCIN [Suspect]
     Active Substance: VANCOMYCIN
     Indication: Bacterial sepsis
     Dosage: COMPLETED COURSE OF VANCOMYCIN
  10. VANCOMYCIN [Suspect]
     Active Substance: VANCOMYCIN
     Indication: Bacillus infection
  11. VANCOMYCIN [Suspect]
     Active Substance: VANCOMYCIN
     Indication: Meningitis
  12. VANCOMYCIN [Suspect]
     Active Substance: VANCOMYCIN
     Indication: Pleocytosis

REACTIONS (1)
  - Candida infection [Recovered/Resolved]
